FAERS Safety Report 7713615-X (Version None)
Quarter: 2011Q3

REPORT INFORMATION
  Report Type: 
  Country: None (occurrence: None)
  Receive Date: 20110826
  Receipt Date: 20110822
  Transmission Date: 20111222
  Serious: Yes (Hospitalization)
  Sender: FDA-Public Use
  Company Number: JP-ROCHE-776667

PATIENT
  Sex: Female

DRUGS (7)
  1. PREDNISOLONE [Concomitant]
     Dosage: DOSE FORM: PERORAL AGENT
     Route: 048
     Dates: start: 20090227, end: 20090326
  2. TOCILIZUMAB [Suspect]
     Route: 041
     Dates: start: 20090129, end: 20090813
  3. PREDNISOLONE [Concomitant]
     Dosage: DOSE FORM: PERORAL AGENT
     Route: 048
     Dates: end: 20090226
  4. PREDNISOLONE [Concomitant]
     Dosage: DOSE FORM: PERORAL AGENT
     Route: 048
     Dates: start: 20090423, end: 20090521
  5. TOCILIZUMAB [Suspect]
     Indication: RHEUMATOID ARTHRITIS
     Route: 041
     Dates: start: 20081125, end: 20081224
  6. PREDNISOLONE [Concomitant]
     Dosage: DOSE FORM: PERORAL AGENT
     Route: 048
     Dates: start: 20090327, end: 20090422
  7. PREDNISOLONE [Concomitant]
     Dosage: DOSE FORM: PERORAL AGENT   DOSE FORM: PERORAL AGENT
     Route: 048
     Dates: start: 20090522

REACTIONS (1)
  - INFECTED SKIN ULCER [None]
